FAERS Safety Report 17285303 (Version 1)
Quarter: 2020Q1

REPORT INFORMATION
  Report Type: Spontaneous
  Country: US (occurrence: US)
  Receive Date: 20200117
  Receipt Date: 20200117
  Transmission Date: 20200409
  Serious: Yes (Hospitalization, Other)
  Sender: FDA-Public Use
  Company Number: US-SA-2020SA011376

PATIENT

DRUGS (2)
  1. PLAVIX [Suspect]
     Active Substance: CLOPIDOGREL BISULFATE
     Indication: ANTICOAGULANT THERAPY
     Dosage: UNK UNK, UNK
     Route: 065
  2. BRILINTA [Suspect]
     Active Substance: TICAGRELOR
     Dosage: UNK UNK, UNK
     Route: 065

REACTIONS (4)
  - Cardiac disorder [Unknown]
  - Drug hypersensitivity [Unknown]
  - Haemorrhage [Unknown]
  - Myocardial infarction [Unknown]
